FAERS Safety Report 4535864-4 (Version None)
Quarter: 2004Q4

REPORT INFORMATION
  Report Type: 
  Country: None (occurrence: None)
  Receive Date: 20041220
  Receipt Date: 20041206
  Transmission Date: 20050328
  Serious: Yes (Hospitalization, Other)
  Sender: FDA-Public Use
  Company Number: 2004104962

PATIENT
  Sex: Female
  Weight: 88.4514 kg

DRUGS (2)
  1. CELEBREX [Suspect]
     Indication: ARTHRITIS
     Dosage: 400 MG (200 MG, 2 IN 1 D), ORAL
     Route: 048
     Dates: start: 20040101, end: 20041201
  2. ANTIHYPERTENSIVES (ANTIHYPERTENSIVES) [Concomitant]

REACTIONS (10)
  - ABDOMINAL PAIN [None]
  - ANAEMIA [None]
  - ARTHRALGIA [None]
  - ELECTROCARDIOGRAM ABNORMAL [None]
  - FAECES DISCOLOURED [None]
  - GASTRIC DISORDER [None]
  - HAEMORRHAGE [None]
  - KNEE ARTHROPLASTY [None]
  - PROCEDURAL COMPLICATION [None]
  - VOMITING [None]
